FAERS Safety Report 9723114 (Version 1)
Quarter: 2013Q4

REPORT INFORMATION
  Report Type: Spontaneous
  Country: US (occurrence: None)
  Receive Date: 20131127
  Receipt Date: 20131127
  Transmission Date: 20140711
  Serious: Yes (Hospitalization, Disabling)
  Sender: FDA-Public Use
  Company Number: None

PATIENT
  Age: 76 Year
  Sex: Female
  Weight: 61.24 kg

DRUGS (6)
  1. CYMBALTA [Suspect]
     Route: 048
     Dates: start: 20070629, end: 20120929
  2. CARDIZEM [Concomitant]
  3. FUROSEMIDE [Concomitant]
  4. BYSTOLIC [Concomitant]
  5. HYDROCODONE [Concomitant]
  6. TRAMADOL ADVAIR [Concomitant]

REACTIONS (3)
  - Hallucination [None]
  - Hyperhidrosis [None]
  - Contusion [None]
